FAERS Safety Report 12283898 (Version 1)
Quarter: 2016Q2

REPORT INFORMATION
  Report Type: Spontaneous
  Country: US (occurrence: US)
  Receive Date: 20160419
  Receipt Date: 20160419
  Transmission Date: 20160815
  Serious: No
  Sender: FDA-Public Use
  Company Number: US-BANPHARM-20154410

PATIENT
  Age: 72 Year
  Sex: Male
  Weight: 68.04 kg

DRUGS (4)
  1. LYCINAPHRO [Concomitant]
  2. ALEVE [Suspect]
     Active Substance: NAPROXEN SODIUM
     Indication: ARTHRITIS
     Dosage: 1 DF, Q8H,
     Route: 048
  3. BAYER 81 MG ENTERIC [Concomitant]
     Dosage: 1 DF, ONCE DAILY,
     Dates: start: 2005
  4. PREDNISONE. [Concomitant]
     Active Substance: PREDNISONE

REACTIONS (1)
  - Drug ineffective [Unknown]

NARRATIVE: CASE EVENT DATE: 201508
